FAERS Safety Report 17463492 (Version 27)
Quarter: 2025Q3

REPORT INFORMATION
  Report Type: Report from Study
  Country: EU (occurrence: EU)
  Receive Date: 20200226
  Receipt Date: 20250818
  Transmission Date: 20251020
  Serious: Yes (Hospitalization)
  Sender: MYLAN
  Company Number: EU-MYLANLABS-2020M1020608

PATIENT
  Age: 70 Year
  Sex: Male
  Weight: 62 kg

DRUGS (84)
  1. DOXEPIN [Suspect]
     Active Substance: DOXEPIN
     Indication: Product used for unknown indication
     Dosage: 50 MILLIGRAM, QD (0-0-2)
     Route: 065
  2. DOXEPIN [Suspect]
     Active Substance: DOXEPIN
     Dosage: 50 MILLIGRAM, QD (0-0-2)
  3. DOXEPIN [Suspect]
     Active Substance: DOXEPIN
     Dosage: 50 MILLIGRAM, QD (0-0-2)
  4. DOXEPIN [Suspect]
     Active Substance: DOXEPIN
     Dosage: 50 MILLIGRAM, QD (0-0-2)
     Route: 065
  5. DOXEPIN [Suspect]
     Active Substance: DOXEPIN
     Dosage: 100 MILLIGRAM, QD(0-0-2)
     Route: 065
  6. DOXEPIN [Suspect]
     Active Substance: DOXEPIN
     Dosage: 100 MILLIGRAM, QD(0-0-2)
     Route: 065
  7. DOXEPIN [Suspect]
     Active Substance: DOXEPIN
     Dosage: 100 MILLIGRAM, QD(0-0-2)
  8. DOXEPIN [Suspect]
     Active Substance: DOXEPIN
     Dosage: 100 MILLIGRAM, QD(0-0-2)
  9. DOXEPIN [Suspect]
     Active Substance: DOXEPIN
     Dosage: 50 MILLIGRAM (0.5 DAY) (0-0-2)
  10. DOXEPIN [Suspect]
     Active Substance: DOXEPIN
     Dosage: 50 MILLIGRAM (0.5 DAY) (0-0-2)
  11. DOXEPIN [Suspect]
     Active Substance: DOXEPIN
     Dosage: 50 MILLIGRAM (0.5 DAY) (0-0-2)
     Route: 065
  12. DOXEPIN [Suspect]
     Active Substance: DOXEPIN
     Dosage: 50 MILLIGRAM (0.5 DAY) (0-0-2)
     Route: 065
  13. DOXEPIN [Suspect]
     Active Substance: DOXEPIN
  14. DOXEPIN [Suspect]
     Active Substance: DOXEPIN
  15. DOXEPIN [Suspect]
     Active Substance: DOXEPIN
     Route: 065
  16. DOXEPIN [Suspect]
     Active Substance: DOXEPIN
     Route: 065
  17. OCREVUS [Suspect]
     Active Substance: OCRELIZUMAB
     Indication: Primary progressive multiple sclerosis
  18. OCREVUS [Suspect]
     Active Substance: OCRELIZUMAB
  19. OCREVUS [Suspect]
     Active Substance: OCRELIZUMAB
     Route: 042
  20. OCREVUS [Suspect]
     Active Substance: OCRELIZUMAB
     Route: 042
  21. OCREVUS [Suspect]
     Active Substance: OCRELIZUMAB
  22. OCREVUS [Suspect]
     Active Substance: OCRELIZUMAB
  23. OCREVUS [Suspect]
     Active Substance: OCRELIZUMAB
     Route: 042
  24. OCREVUS [Suspect]
     Active Substance: OCRELIZUMAB
     Route: 042
  25. OCREVUS [Suspect]
     Active Substance: OCRELIZUMAB
  26. OCREVUS [Suspect]
     Active Substance: OCRELIZUMAB
  27. OCREVUS [Suspect]
     Active Substance: OCRELIZUMAB
     Route: 042
  28. OCREVUS [Suspect]
     Active Substance: OCRELIZUMAB
     Route: 042
  29. OCREVUS [Suspect]
     Active Substance: OCRELIZUMAB
  30. OCREVUS [Suspect]
     Active Substance: OCRELIZUMAB
     Route: 042
  31. OCREVUS [Suspect]
     Active Substance: OCRELIZUMAB
     Route: 042
  32. OCREVUS [Suspect]
     Active Substance: OCRELIZUMAB
  33. OCREVUS [Suspect]
     Active Substance: OCRELIZUMAB
     Route: 042
  34. OCREVUS [Suspect]
     Active Substance: OCRELIZUMAB
     Route: 042
  35. OCREVUS [Suspect]
     Active Substance: OCRELIZUMAB
  36. OCREVUS [Suspect]
     Active Substance: OCRELIZUMAB
  37. OCREVUS [Suspect]
     Active Substance: OCRELIZUMAB
     Route: 042
  38. OCREVUS [Suspect]
     Active Substance: OCRELIZUMAB
     Route: 042
  39. OCREVUS [Suspect]
     Active Substance: OCRELIZUMAB
  40. OCREVUS [Suspect]
     Active Substance: OCRELIZUMAB
  41. OCREVUS [Suspect]
     Active Substance: OCRELIZUMAB
  42. OCREVUS [Suspect]
     Active Substance: OCRELIZUMAB
  43. OCREVUS [Suspect]
     Active Substance: OCRELIZUMAB
     Route: 042
  44. OCREVUS [Suspect]
     Active Substance: OCRELIZUMAB
     Route: 042
  45. OCREVUS [Suspect]
     Active Substance: OCRELIZUMAB
     Route: 042
  46. OCREVUS [Suspect]
     Active Substance: OCRELIZUMAB
     Route: 042
  47. OCREVUS [Suspect]
     Active Substance: OCRELIZUMAB
  48. OCREVUS [Suspect]
     Active Substance: OCRELIZUMAB
  49. OCREVUS [Suspect]
     Active Substance: OCRELIZUMAB
  50. OCREVUS [Suspect]
     Active Substance: OCRELIZUMAB
     Route: 042
  51. OCREVUS [Suspect]
     Active Substance: OCRELIZUMAB
  52. OCREVUS [Suspect]
     Active Substance: OCRELIZUMAB
     Route: 042
  53. DALFAMPRIDINE [Suspect]
     Active Substance: DALFAMPRIDINE
     Indication: Product used for unknown indication
     Dosage: 2 DOSAGE FORM, QD(1-0-1)
     Route: 065
  54. DALFAMPRIDINE [Suspect]
     Active Substance: DALFAMPRIDINE
     Dosage: 2 DOSAGE FORM, QD(1-0-1)
  55. DALFAMPRIDINE [Suspect]
     Active Substance: DALFAMPRIDINE
     Dosage: 2 DOSAGE FORM, QD(1-0-1)
  56. DALFAMPRIDINE [Suspect]
     Active Substance: DALFAMPRIDINE
     Dosage: 2 DOSAGE FORM, QD(1-0-1)
     Route: 065
  57. DALFAMPRIDINE [Suspect]
     Active Substance: DALFAMPRIDINE
     Dosage: UNK UNK, BID (1-0-1)
     Route: 065
  58. DALFAMPRIDINE [Suspect]
     Active Substance: DALFAMPRIDINE
     Dosage: UNK UNK, BID (1-0-1)
  59. DALFAMPRIDINE [Suspect]
     Active Substance: DALFAMPRIDINE
     Dosage: UNK UNK, BID (1-0-1)
  60. DALFAMPRIDINE [Suspect]
     Active Substance: DALFAMPRIDINE
     Dosage: UNK UNK, BID (1-0-1)
     Route: 065
  61. DALFAMPRIDINE [Suspect]
     Active Substance: DALFAMPRIDINE
     Dosage: 10 MILLIGRAM, BID(1-0-1)
     Route: 065
  62. DALFAMPRIDINE [Suspect]
     Active Substance: DALFAMPRIDINE
     Dosage: 10 MILLIGRAM, BID(1-0-1)
     Route: 065
  63. DALFAMPRIDINE [Suspect]
     Active Substance: DALFAMPRIDINE
     Dosage: 10 MILLIGRAM, BID(1-0-1)
  64. DALFAMPRIDINE [Suspect]
     Active Substance: DALFAMPRIDINE
     Dosage: 10 MILLIGRAM, BID(1-0-1)
  65. AMANTADINE [Concomitant]
     Active Substance: AMANTADINE
     Dosage: 200 MILLIGRAM, QD
  66. AMANTADINE [Concomitant]
     Active Substance: AMANTADINE
     Dosage: 200 MILLIGRAM, QD
  67. AMANTADINE [Concomitant]
     Active Substance: AMANTADINE
     Dosage: 200 MILLIGRAM, QD
     Route: 065
  68. AMANTADINE [Concomitant]
     Active Substance: AMANTADINE
     Dosage: 200 MILLIGRAM, QD
     Route: 065
  69. AMANTADINE [Concomitant]
     Active Substance: AMANTADINE
     Dosage: 100 MILLIGRAM (0.5 DAY) (FREQUENCY TEXT:1-0-1)
  70. AMANTADINE [Concomitant]
     Active Substance: AMANTADINE
     Dosage: 100 MILLIGRAM (0.5 DAY) (FREQUENCY TEXT:1-0-1)
  71. AMANTADINE [Concomitant]
     Active Substance: AMANTADINE
     Dosage: 100 MILLIGRAM (0.5 DAY) (FREQUENCY TEXT:1-0-1)
     Route: 065
  72. AMANTADINE [Concomitant]
     Active Substance: AMANTADINE
     Dosage: 100 MILLIGRAM (0.5 DAY) (FREQUENCY TEXT:1-0-1)
     Route: 065
  73. LEVODOPA [Concomitant]
     Active Substance: LEVODOPA
     Dosage: 1 DOSAGE FORM, QD (FREQUENCY TEXT:1-0-0)
  74. LEVODOPA [Concomitant]
     Active Substance: LEVODOPA
     Dosage: 1 DOSAGE FORM, QD (FREQUENCY TEXT:1-0-0)
     Route: 065
  75. LEVODOPA [Concomitant]
     Active Substance: LEVODOPA
     Dosage: 1 DOSAGE FORM, QD (FREQUENCY TEXT:1-0-0)
     Route: 065
  76. LEVODOPA [Concomitant]
     Active Substance: LEVODOPA
     Dosage: 1 DOSAGE FORM, QD (FREQUENCY TEXT:1-0-0)
  77. TAMSULOSIN [Concomitant]
     Active Substance: TAMSULOSIN
     Dosage: 0.4 MILLIGRAM, QD (FREQUENCY TEXT:1-0-0)
  78. TAMSULOSIN [Concomitant]
     Active Substance: TAMSULOSIN
     Dosage: 0.4 MILLIGRAM, QD (FREQUENCY TEXT:1-0-0)
     Route: 065
  79. TAMSULOSIN [Concomitant]
     Active Substance: TAMSULOSIN
     Dosage: 0.4 MILLIGRAM, QD (FREQUENCY TEXT:1-0-0)
     Route: 065
  80. TAMSULOSIN [Concomitant]
     Active Substance: TAMSULOSIN
     Dosage: 0.4 MILLIGRAM, QD (FREQUENCY TEXT:1-0-0)
  81. NEUPRO [Concomitant]
     Active Substance: ROTIGOTINE
     Dosage: UNK, QD (FREQUENCY TEXT:24H)
  82. NEUPRO [Concomitant]
     Active Substance: ROTIGOTINE
     Dosage: UNK, QD (FREQUENCY TEXT:24H)
     Route: 065
  83. NEUPRO [Concomitant]
     Active Substance: ROTIGOTINE
     Dosage: UNK, QD (FREQUENCY TEXT:24H)
     Route: 065
  84. NEUPRO [Concomitant]
     Active Substance: ROTIGOTINE
     Dosage: UNK, QD (FREQUENCY TEXT:24H)

REACTIONS (34)
  - Bladder cancer [Not Recovered/Not Resolved]
  - Groin pain [Recovering/Resolving]
  - Swelling [Recovering/Resolving]
  - Inguinal hernia [Recovered/Resolved]
  - Muscular weakness [Recovered/Resolved]
  - Pneumonia [Not Recovered/Not Resolved]
  - Gallbladder cancer [Recovered/Resolved]
  - Ventricular fibrillation [Not Recovered/Not Resolved]
  - Cystitis noninfective [Not Recovered/Not Resolved]
  - Pain in extremity [Recovered/Resolved]
  - Bladder cyst [Not Recovered/Not Resolved]
  - Balance disorder [Not Recovered/Not Resolved]
  - Contusion [Recovered/Resolved]
  - Headache [Recovered/Resolved]
  - Movement disorder [Recovered/Resolved]
  - Gait disturbance [Not Recovered/Not Resolved]
  - Muscle spasms [Recovered/Resolved]
  - Rhinorrhoea [Recovered/Resolved]
  - Nasal congestion [Recovered/Resolved]
  - Wound [Recovered/Resolved]
  - Arthralgia [Recovered/Resolved]
  - Middle insomnia [Recovered/Resolved]
  - Rib fracture [Recovered/Resolved]
  - Initial insomnia [Recovered/Resolved]
  - Fall [Unknown]
  - Back pain [Recovered/Resolved]
  - Chest pain [Not Recovered/Not Resolved]
  - Fatigue [Not Recovered/Not Resolved]
  - Dry mouth [Recovered/Resolved]
  - Arthropod bite [Recovering/Resolving]
  - Defaecation urgency [Not Recovered/Not Resolved]
  - Fluid retention [Recovering/Resolving]
  - Erythema [Not Recovered/Not Resolved]
  - Weight decreased [Not Recovered/Not Resolved]

NARRATIVE: CASE EVENT DATE: 20180613
